FAERS Safety Report 6552085-4 (Version None)
Quarter: 2010Q1

REPORT INFORMATION
  Report Type: 
  Country: None (occurrence: None)
  Receive Date: 20100126
  Receipt Date: 20100119
  Transmission Date: 20100710
  Serious: Yes (Hospitalization, Other)
  Sender: FDA-Public Use
  Company Number: US-SANOFI-AVENTIS-2010SA003640

PATIENT
  Age: 81 Year
  Sex: Male

DRUGS (6)
  1. PLAVIX [Suspect]
     Route: 048
     Dates: start: 20080301, end: 20080704
  2. ASPIRIN [Suspect]
     Route: 048
     Dates: start: 19880101, end: 19970101
  3. ASPIRIN [Suspect]
     Route: 048
     Dates: start: 19970101, end: 20080704
  4. ASPIRIN [Suspect]
     Route: 048
     Dates: start: 20080701
  5. ANTIHYPERTENSIVES [Concomitant]
  6. DRUG USED IN DIABETES [Concomitant]
     Route: 048

REACTIONS (8)
  - CONTUSION [None]
  - FALL [None]
  - GAIT DISTURBANCE [None]
  - HAEMORRHAGE [None]
  - HAEMORRHAGE SUBCUTANEOUS [None]
  - MONOPLEGIA [None]
  - ROTATOR CUFF SYNDROME [None]
  - SUBDURAL HAEMATOMA [None]
